FAERS Safety Report 10223169 (Version 1)
Quarter: 2014Q2

REPORT INFORMATION
  Report Type: Spontaneous
  Country: US (occurrence: US)
  Receive Date: 20140608
  Receipt Date: 20140608
  Transmission Date: 20141212
  Serious: No
  Sender: FDA-Public Use
  Company Number: US-009507513-1406USA002451

PATIENT
  Age: 75 Year
  Sex: Female

DRUGS (19)
  1. JANUVIA [Suspect]
     Indication: DIABETES MELLITUS
     Dosage: 100 MG, QD
     Route: 048
  2. KLOR-CON [Concomitant]
  3. ADVAIR [Concomitant]
  4. FLUTICASONE PROPIONATE [Concomitant]
  5. MONTELUKAST SODIUM [Concomitant]
  6. XOPENEX [Concomitant]
  7. ALBUTEROL [Concomitant]
  8. HUMULIN [Concomitant]
  9. LANTUS [Concomitant]
  10. ISO (ISOSORBIDE MONONITRATE) [Concomitant]
  11. VERAPAMIL [Concomitant]
  12. FUROSEMIDE [Concomitant]
  13. LOSARTAN POTASSIUM [Concomitant]
  14. CARAFATE [Concomitant]
  15. NEXIUM [Concomitant]
  16. BAYER 1219 [Concomitant]
  17. BREEZEE MIST [Concomitant]
  18. CODEINE [Concomitant]
  19. ICAPS [Concomitant]

REACTIONS (4)
  - Muscle spasms [Unknown]
  - Drug effect decreased [Unknown]
  - Nausea [Unknown]
  - Vomiting [Unknown]
